FAERS Safety Report 16695146 (Version 1)
Quarter: 2019Q3

REPORT INFORMATION
  Report Type: Report from Study
  Country: NL (occurrence: NL)
  Receive Date: 20190813
  Receipt Date: 20190813
  Transmission Date: 20191004
  Serious: Yes (Hospitalization, Other)
  Sender: FDA-Public Use
  Company Number: NL-TEVA-644157ACC

PATIENT
  Age: 65 Year
  Sex: Male

DRUGS (3)
  1. BENDAMUSTINE HYDROCHLORIDE. [Suspect]
     Active Substance: BENDAMUSTINE HYDROCHLORIDE
     Indication: LYMPHOMA
     Dosage: 180 MG/DAY, CYCLIC
     Route: 042
     Dates: start: 20150831
  2. RITUXIMAB. [Suspect]
     Active Substance: RITUXIMAB
     Indication: LYMPHOMA
     Route: 065
     Dates: start: 20150831
  3. LENALIDOMIDE [Suspect]
     Active Substance: LENALIDOMIDE
     Indication: LYMPHOMA
     Route: 065
     Dates: start: 20150831

REACTIONS (4)
  - Cholelithiasis [Recovered/Resolved]
  - Squamous cell carcinoma [Recovered/Resolved]
  - Sepsis [Recovered/Resolved]
  - Basal cell carcinoma [Recovered/Resolved]

NARRATIVE: CASE EVENT DATE: 20160307
